FAERS Safety Report 5488872-3 (Version None)
Quarter: 2007Q4

REPORT INFORMATION
  Report Type: 
  Country: None (occurrence: None)
  Receive Date: 20071016
  Receipt Date: 20071005
  Transmission Date: 20080405
  Serious: Yes (Hospitalization)
  Sender: FDA-Public Use
  Company Number: GXKR2007GB08634

PATIENT
  Sex: Female

DRUGS (2)
  1. GABAPENTIN [Suspect]
  2. LIPITOR [Suspect]
     Dosage: 80 MG, QD, ORAL
     Route: 048

REACTIONS (1)
  - HEPATIC FAILURE [None]
